FAERS Safety Report 14607082 (Version 2)
Quarter: 2018Q1

REPORT INFORMATION
  Report Type: Report from Study
  Country: RU (occurrence: RU)
  Receive Date: 20180307
  Receipt Date: 20180323
  Transmission Date: 20180509
  Serious: Yes (Hospitalization)
  Sender: FDA-Public Use
  Company Number: RU-JNJFOC-20180300046

PATIENT
  Age: 7 Year
  Sex: Female
  Weight: 24.3 kg

DRUGS (4)
  1. FOLIC ACID. [Concomitant]
     Active Substance: FOLIC ACID
     Route: 065
  2. GOLIMUMAB [Suspect]
     Active Substance: GOLIMUMAB
     Route: 042
  3. GOLIMUMAB [Suspect]
     Active Substance: GOLIMUMAB
     Indication: JUVENILE IDIOPATHIC ARTHRITIS
     Route: 042
     Dates: start: 20171129, end: 20171225
  4. METHOTREXATE. [Concomitant]
     Active Substance: METHOTREXATE
     Route: 042

REACTIONS (1)
  - Varicella [Recovered/Resolved]

NARRATIVE: CASE EVENT DATE: 20180225
